FAERS Safety Report 5302640-4 (Version None)
Quarter: 2007Q2

REPORT INFORMATION
  Report Type: 
  Country: None (occurrence: None)
  Receive Date: 20070419
  Receipt Date: 20070312
  Transmission Date: 20071010
  Serious: Yes (Other)
  Sender: FDA-Public Use
  Company Number: US-SANOFI-SYNTHELABO-A03200702331

PATIENT
  Sex: Male

DRUGS (1)
  1. AMBIEN [Suspect]
     Indication: INSOMNIA
     Dosage: 10 MG THREE TIMES/WEEK UNK
     Route: 048
     Dates: start: 20050201, end: 20060221

REACTIONS (6)
  - AMNESIA [None]
  - CONVULSION [None]
  - GAIT DISTURBANCE [None]
  - ROAD TRAFFIC ACCIDENT [None]
  - SLEEP TALKING [None]
  - SLEEP WALKING [None]
